FAERS Safety Report 9934203 (Version 1)
Quarter: 2014Q1

REPORT INFORMATION
  Report Type: Spontaneous
  Country: FR (occurrence: FR)
  Receive Date: 20140228
  Receipt Date: 20140228
  Transmission Date: 20141002
  Serious: Yes (Hospitalization)
  Sender: FDA-Public Use
  Company Number: FR-ABBVIE-14P-056-1205267-00

PATIENT
  Age: 14 Year
  Sex: Female

DRUGS (3)
  1. HUMIRA [Suspect]
     Indication: COLITIS ULCERATIVE
     Dosage: 80 MG AND THEN 40 MG
     Dates: start: 20131012, end: 20131019
  2. MESALAZINE [Concomitant]
     Indication: COLITIS ULCERATIVE
     Dates: start: 201310
  3. CORTICOIDS (NOS) [Concomitant]
     Indication: COLITIS ULCERATIVE
     Dates: start: 201310

REACTIONS (6)
  - Arthralgia [Unknown]
  - Alopecia [Unknown]
  - Psoriasis [Unknown]
  - Asthenia [Recovered/Resolved]
  - Headache [Recovered/Resolved]
  - Tremor [Recovered/Resolved]
